FAERS Safety Report 8887370 (Version 1)
Quarter: 2012Q4

REPORT INFORMATION
  Report Type: 
  Country: US (occurrence: US)
  Receive Date: 20121101
  Receipt Date: 20121101
  Transmission Date: 20130627
  Serious: Yes (Hospitalization)
  Sender: FDA-Public Use
  Company Number: US-ELI_LILLY_AND_COMPANY-US201210009609

PATIENT
  Age: 52 Year
  Sex: Female
  Weight: 115.65 kg

DRUGS (19)
  1. BYETTA [Suspect]
     Indication: TYPE 2 DIABETES MELLITUS
     Dosage: 5 ug, bid
     Route: 058
  2. BYETTA [Suspect]
     Dosage: 10 ug, bid
     Route: 058
     Dates: end: 20120929
  3. METFORMIN [Concomitant]
     Indication: TYPE 2 DIABETES MELLITUS
     Dosage: 1000 mg, bid
     Route: 048
  4. PAXIL [Concomitant]
     Indication: DEPRESSION
     Dosage: 20 mg, qd
     Route: 048
  5. ACTOS [Concomitant]
     Indication: TYPE 2 DIABETES MELLITUS
     Dosage: 45 mg, qd
     Route: 048
  6. MICARDIS [Concomitant]
     Indication: CARDIAC DISORDER
     Dosage: 20 mg, qd
     Route: 048
  7. TRICOR [Concomitant]
     Indication: BLOOD TRIGLYCERIDES INCREASED
     Dosage: 145 mg, qd
     Route: 048
  8. SYNTHROID [Concomitant]
     Indication: THYROID DISORDER
     Dosage: 75 ug, qd
     Route: 048
  9. PREVACID [Concomitant]
     Indication: GASTROOESOPHAGEAL REFLUX DISEASE
     Dosage: 30 mg, qd
     Route: 048
  10. FLEXERIL [Concomitant]
     Dosage: 10 mg, qd
     Route: 048
  11. LOVAZA [Concomitant]
     Dosage: 1 g, bid
     Route: 048
  12. LOPRESSOR [Concomitant]
     Indication: CARDIAC DISORDER
     Dosage: 12.5 mg, qd
     Route: 048
  13. ALDACTONE [Concomitant]
     Indication: CARDIAC DISORDER
     Dosage: 12.5 mg, qd
     Route: 048
  14. NIACIN [Concomitant]
     Dosage: 1500 mg, bid
     Route: 048
  15. VITAMIN C [Concomitant]
     Dosage: 1000 mg, bid
     Route: 048
  16. POTASSIUM [Concomitant]
     Dosage: 99 mg, qd
     Route: 048
  17. VITAMIN B12 [Concomitant]
     Dosage: 5000 mg, bid
     Route: 048
  18. ASPIRIN [Concomitant]
     Indication: CARDIAC DISORDER
     Dosage: 81 mg, bid
     Route: 048
  19. IBUPROFEN [Concomitant]
     Dosage: 200 mg, prn
     Route: 048

REACTIONS (4)
  - Myocardial infarction [Unknown]
  - Pancreatitis [Unknown]
  - Abdominal pain [Unknown]
  - Vomiting [Unknown]
